FAERS Safety Report 5334439-7 (Version None)
Quarter: 2007Q2

REPORT INFORMATION
  Report Type: 
  Country: None (occurrence: None)
  Receive Date: 20070525
  Receipt Date: 20070105
  Transmission Date: 20071010
  Serious: No
  Sender: FDA-Public Use
  Company Number: A0631039A

PATIENT
  Age: 47 Year
  Sex: Male
  Weight: 115 kg

DRUGS (9)
  1. FLOLAN [Suspect]
     Route: 042
     Dates: start: 20061111
  2. LASIX [Concomitant]
     Dosage: 80MG PER DAY
     Route: 048
  3. LACTULOSE [Concomitant]
     Dosage: 20G PER DAY
     Route: 048
  4. SPIRONOLACTONE [Concomitant]
     Dosage: 100MG PER DAY
     Route: 048
  5. XIFAXAN [Concomitant]
     Dosage: 200MG PER DAY
     Route: 048
  6. HEPARIN LOCK-FLUSH [Concomitant]
  7. ACETAMINOPHEN AND HYDROCODONE BITARTRATE [Concomitant]
     Route: 048
  8. EFFEXOR [Concomitant]
     Dosage: 37.5MG PER DAY
     Route: 048
  9. PROTONIX [Concomitant]
     Dosage: 40MG PER DAY
     Route: 048

REACTIONS (1)
  - HEADACHE [None]
